FAERS Safety Report 20651351 (Version 1)
Quarter: 2022Q1

REPORT INFORMATION
  Report Type: Spontaneous
  Country: IN (occurrence: IN)
  Receive Date: 20220330
  Receipt Date: 20220330
  Transmission Date: 20220423
  Serious: Yes (Death, Hospitalization, Other)
  Sender: FDA-Public Use
  Company Number: IN-LOTUS-2022-LOTUS-048674

PATIENT
  Age: 60 Year
  Sex: Female

DRUGS (5)
  1. METHOTREXATE [Suspect]
     Active Substance: METHOTREXATE
     Indication: Rheumatoid arthritis
  2. IOHEXOL [Suspect]
     Active Substance: IOHEXOL
     Indication: Angiogram
     Route: 042
  3. MANNITOL [Suspect]
     Active Substance: MANNITOL
     Indication: Product used for unknown indication
  4. LEVETIRACETAM [Concomitant]
     Active Substance: LEVETIRACETAM
     Indication: Product used for unknown indication
  5. ACETAMINOPHEN [Concomitant]
     Active Substance: ACETAMINOPHEN
     Indication: Product used for unknown indication

REACTIONS (8)
  - Multiple organ dysfunction syndrome [Fatal]
  - Toxicity to various agents [Fatal]
  - Cardiac arrest [Fatal]
  - Pancytopenia [Fatal]
  - Ventricular hypokinesia [Fatal]
  - Pericardial effusion [Fatal]
  - Leukoencephalopathy [Fatal]
  - Rash erythematous [Fatal]
